FAERS Safety Report 7159909-0 (Version None)
Quarter: 2010Q4

REPORT INFORMATION
  Report Type: 
  Country: None (occurrence: None)
  Receive Date: 20101214
  Receipt Date: 20101202
  Transmission Date: 20110411
  Serious: Yes (Other)
  Sender: FDA-Public Use
  Company Number: PHHY2010US41989

PATIENT
  Sex: Female
  Weight: 97 kg

DRUGS (2)
  1. RECLAST [Suspect]
     Indication: OSTEOPOROSIS
     Dosage: 5 MG,1*DOSE YEARLY
     Route: 042
     Dates: start: 20090228
  2. XANAX [Concomitant]

REACTIONS (14)
  - ABDOMINAL DISCOMFORT [None]
  - ARTHRALGIA [None]
  - ASTHENIA [None]
  - CRYING [None]
  - DIPLEGIA [None]
  - FEELING ABNORMAL [None]
  - FIBROMYALGIA [None]
  - GAIT DISTURBANCE [None]
  - MENTAL DISORDER [None]
  - MUSCLE SPASMS [None]
  - MYALGIA [None]
  - PAIN IN JAW [None]
  - PARALYSIS [None]
  - TOOTHACHE [None]
